FAERS Safety Report 13205701 (Version 1)
Quarter: 2017Q1

REPORT INFORMATION
  Report Type: Report from Study
  Country: CA (occurrence: CA)
  Receive Date: 20170208
  Receipt Date: 20170208
  Transmission Date: 20170428
  Serious: Yes (Hospitalization)
  Sender: FDA-Public Use
  Company Number: CA-TAKEDA-2016TUS015898

PATIENT
  Age: 21 Year
  Sex: Female

DRUGS (5)
  1. CORTISONE [Suspect]
     Active Substance: CORTISONE\HYDROCORTISONE
     Indication: PRODUCT USED FOR UNKNOWN INDICATION
     Dosage: UNK
     Route: 065
  2. PREDNISONE. [Concomitant]
     Active Substance: PREDNISONE
     Dosage: UNK
  3. VITAMIN D [Concomitant]
     Active Substance: CHOLECALCIFEROL
     Dosage: UNK
  4. CALCIUM [Concomitant]
     Active Substance: CALCIUM
     Dosage: UNK
  5. VEDOLIZUMAB [Suspect]
     Active Substance: VEDOLIZUMAB
     Indication: COLITIS ULCERATIVE
     Dosage: 300 MG, UNK
     Route: 042
     Dates: start: 20160831, end: 20161208

REACTIONS (18)
  - Anxiety [Unknown]
  - Diarrhoea haemorrhagic [Not Recovered/Not Resolved]
  - Crohn^s disease [Not Recovered/Not Resolved]
  - Headache [Unknown]
  - Stress [Unknown]
  - Aphasia [Unknown]
  - Burn oesophageal [Unknown]
  - Abdominal pain [Unknown]
  - Hypersensitivity [Unknown]
  - Surgery [Unknown]
  - Vomiting [Unknown]
  - Hypersomnia [Unknown]
  - Bone pain [Unknown]
  - Malaise [Unknown]
  - Nausea [Unknown]
  - Rash pruritic [Unknown]
  - Diarrhoea [Unknown]
  - Fatigue [Unknown]

NARRATIVE: CASE EVENT DATE: 2016
